FAERS Safety Report 9759915 (Version 1)
Quarter: 2013Q4

REPORT INFORMATION
  Report Type: Spontaneous
  Country: ES (occurrence: ES)
  Receive Date: 20131216
  Receipt Date: 20131216
  Transmission Date: 20140711
  Serious: Yes (Hospitalization, Other)
  Sender: FDA-Public Use
  Company Number: ES-PFIZER INC-2013356256

PATIENT
  Age: 71 Year
  Sex: Female

DRUGS (4)
  1. FARMIBLASTINA [Suspect]
     Dosage: 50 MG, UNK
     Dates: start: 20130819, end: 20130819
  2. GENOXAL [Suspect]
     Dosage: 1 G, UNK
     Dates: start: 20130819, end: 20130819
  3. MABTHERA [Suspect]
     Indication: B-CELL LYMPHOMA
     Dosage: 588 MG/DAY
     Route: 042
     Dates: start: 20130823, end: 20130823
  4. VINCRISTINA TEVA [Suspect]
     Dosage: 1 MG/ML
     Dates: start: 20130819, end: 20130819

REACTIONS (1)
  - Posterior reversible encephalopathy syndrome [Recovered/Resolved]
